FAERS Safety Report 7414318-1 (Version None)
Quarter: 2011Q2

REPORT INFORMATION
  Report Type: 
  Country: None (occurrence: None)
  Receive Date: 20110411
  Receipt Date: 20110411
  Transmission Date: 20111010
  Serious: No
  Sender: FDA-Public Use
  Company Number: None

PATIENT
  Age: 55 Year
  Sex: Female
  Weight: 131.5431 kg

DRUGS (1)
  1. METFORMIN HYDROCHLORIDE [Suspect]
     Dosage: .5-1 TAB BID BID ORAL
     Route: 048

REACTIONS (1)
  - DIARRHOEA [None]
